FAERS Safety Report 7561187-5 (Version None)
Quarter: 2011Q2

REPORT INFORMATION
  Report Type: 
  Country: None (occurrence: None)
  Receive Date: 20110621
  Receipt Date: 20110215
  Transmission Date: 20111010
  Serious: No
  Sender: FDA-Public Use
  Company Number: US-ASTRAZENECA-2009SE12446

PATIENT
  Age: 61 Year
  Sex: Female
  Weight: 54.4 kg

DRUGS (9)
  1. PRILOSEC [Suspect]
     Indication: GASTROOESOPHAGEAL REFLUX DISEASE
     Route: 048
     Dates: start: 19890101, end: 20090101
  2. XANAX [Concomitant]
  3. CORTEF [Concomitant]
  4. PULMICORT FLEXHALER [Suspect]
     Indication: ASTHMA
     Route: 055
  5. PERCOCET [Concomitant]
  6. NEXIUM [Suspect]
     Indication: GASTROOESOPHAGEAL REFLUX DISEASE
     Route: 048
     Dates: start: 20091101
  7. PRILOSEC [Suspect]
     Route: 048
     Dates: start: 20090701, end: 20090907
  8. PRILOSEC OTC [Suspect]
     Route: 048
  9. PRILOSEC [Suspect]
     Route: 048
     Dates: start: 20090907, end: 20090909

REACTIONS (9)
  - OSTEOPOROSIS [None]
  - GASTRIC POLYPS [None]
  - INTENTIONAL OVERDOSE [None]
  - BURNING SENSATION [None]
  - PRURITUS [None]
  - OESOPHAGEAL ULCER [None]
  - HYPOAESTHESIA ORAL [None]
  - DRUG INEFFECTIVE [None]
  - DYSPEPSIA [None]
